FAERS Safety Report 8610117-3 (Version None)
Quarter: 2012Q3

REPORT INFORMATION
  Report Type: 
  Country: None (occurrence: None)
  Receive Date: 20120822
  Receipt Date: 20120814
  Transmission Date: 20120928
  Serious: No
  Sender: FDA-Public Use
  Company Number: US-BIOGENIDEC-2012BI031538

PATIENT
  Sex: Male

DRUGS (2)
  1. TYSABRI [Suspect]
     Indication: MULTIPLE SCLEROSIS
     Route: 042
     Dates: start: 20070829, end: 20091116
  2. TYSABRI [Suspect]
     Route: 042
     Dates: start: 20101020

REACTIONS (2)
  - DRUG DOSE OMISSION [None]
  - GENERAL SYMPTOM [None]
